FAERS Safety Report 4955079-5 (Version None)
Quarter: 2006Q1

REPORT INFORMATION
  Report Type: 
  Country: None (occurrence: None)
  Receive Date: 20060322
  Receipt Date: 20060302
  Transmission Date: 20060701
  Serious: Yes (Other)
  Sender: FDA-Public Use
  Company Number: US200603001251

PATIENT
  Sex: Male

DRUGS (1)
  1. ZYPREXA [Suspect]
     Dosage: UNK
     Route: 065
     Dates: start: 20000401, end: 20040301

REACTIONS (3)
  - DIABETES MELLITUS [None]
  - DIALYSIS [None]
  - RENAL FAILURE ACUTE [None]
